FAERS Safety Report 10952862 (Version 2)
Quarter: 2015Q1

REPORT INFORMATION
  Report Type: Spontaneous
  Country: MX (occurrence: MX)
  Receive Date: 20150325
  Receipt Date: 20150330
  Transmission Date: 20150721
  Serious: Yes (Other)
  Sender: FDA-Public Use
  Company Number: MX-SA-2015SA035442

PATIENT
  Sex: Male

DRUGS (1)
  1. FABRAZYME [Suspect]
     Active Substance: AGALSIDASE BETA
     Indication: FABRY^S DISEASE
     Route: 042
     Dates: start: 20130213

REACTIONS (7)
  - Weight decreased [Not Recovered/Not Resolved]
  - Abnormal behaviour [Unknown]
  - Disturbance in attention [Unknown]
  - Nervous system disorder [Not Recovered/Not Resolved]
  - Memory impairment [Unknown]
  - Insomnia [Unknown]
  - Aggression [Unknown]

NARRATIVE: CASE EVENT DATE: 201411
